FAERS Safety Report 21604628 (Version 3)
Quarter: 2022Q4

REPORT INFORMATION
  Report Type: Report from Study
  Country: KR (occurrence: KR)
  Receive Date: 20221116
  Receipt Date: 20221123
  Transmission Date: 20230113
  Serious: Yes (Hospitalization)
  Sender: FDA-Public Use
  Company Number: KR-BRISTOL-MYERS SQUIBB COMPANY-2022-137953

PATIENT
  Age: 59 Year
  Sex: Male
  Weight: 58 kg

DRUGS (9)
  1. NIVOLUMAB [Suspect]
     Active Substance: NIVOLUMAB
     Indication: Hepatocellular carcinoma
     Dosage: MG
     Route: 065
     Dates: start: 20221103, end: 20221103
  2. BETMIGA PR [Concomitant]
     Indication: Product used for unknown indication
     Route: 048
     Dates: start: 202110
  3. GLUCOPHAGE [Concomitant]
     Active Substance: METFORMIN HYDROCHLORIDE
     Indication: Product used for unknown indication
     Route: 048
     Dates: start: 2018
  4. ESCHERICHIA COLI [Concomitant]
     Active Substance: ESCHERICHIA COLI
     Indication: Product used for unknown indication
     Route: 048
     Dates: start: 202110
  5. PENNEL [ALLIUM SATIVUM OIL] [Concomitant]
     Indication: Product used for unknown indication
     Route: 048
     Dates: start: 202103
  6. CENTIREX SILVER ADVANCE TAB [Concomitant]
     Indication: Product used for unknown indication
     Route: 048
     Dates: start: 202103
  7. JANUVIA [Concomitant]
     Active Substance: SITAGLIPTIN PHOSPHATE
     Indication: Product used for unknown indication
     Route: 048
     Dates: start: 2018
  8. DIAMICRON MR TAB [Concomitant]
     Indication: Product used for unknown indication
     Route: 048
     Dates: start: 2018
  9. SYNTHROID [Concomitant]
     Active Substance: LEVOTHYROXINE SODIUM
     Indication: Product used for unknown indication
     Route: 048
     Dates: start: 202107

REACTIONS (1)
  - Pyrexia [Recovered/Resolved]

NARRATIVE: CASE EVENT DATE: 20221112
